FAERS Safety Report 9516653 (Version 1)
Quarter: 2013Q3

REPORT INFORMATION
  Report Type: Spontaneous
  Country: US (occurrence: None)
  Receive Date: 20130910
  Receipt Date: 20130910
  Transmission Date: 20140515
  Serious: Yes (Death)
  Sender: FDA-Public Use
  Company Number: None

PATIENT
  Age: 68 Year
  Sex: Male
  Weight: 99.79 kg

DRUGS (1)
  1. XARELTO [Suspect]
     Indication: ATRIAL FIBRILLATION
     Dosage: 20 MG 1 PILL/DAY ONCE DAILY W/EVENING MEAL BY MOUTH
     Route: 048
     Dates: start: 201210, end: 20130414

REACTIONS (1)
  - Cerebral haemorrhage [None]
